FAERS Safety Report 4330761-1 (Version None)
Quarter: 2004Q1

REPORT INFORMATION
  Report Type: 
  Country: None (occurrence: None)
  Receive Date: 20040329
  Receipt Date: 20040318
  Transmission Date: 20041129
  Serious: Yes (Other)
  Sender: FDA-Public Use
  Company Number: 200331072BWH

PATIENT
  Age: 59 Year
  Sex: Female
  Weight: 41.2773 kg

DRUGS (8)
  1. AVELOX [Suspect]
     Indication: SINUSITIS
     Dosage: 400 MG, QD, ORAL
     Route: 048
     Dates: start: 20030912, end: 20030916
  2. AVELOX [Suspect]
     Indication: SINUSITIS
     Dosage: 400 MG, QD, ORAL
     Route: 048
     Dates: start: 20031008, end: 20031012
  3. RITALIN [Concomitant]
  4. TYLENOL (CAPLET) [Concomitant]
  5. ANTIGEN INJECTIONS [Concomitant]
  6. THYROID TAB [Concomitant]
  7. AMBIEN [Concomitant]
  8. ZOVIRAX [Concomitant]

REACTIONS (15)
  - ABDOMINAL PAIN UPPER [None]
  - ANAEMIA [None]
  - DIFFICULTY IN WALKING [None]
  - DISEASE RECURRENCE [None]
  - FALL [None]
  - INFLAMMATION [None]
  - JOINT DISLOCATION [None]
  - NAUSEA [None]
  - PAIN [None]
  - PLATELET COUNT INCREASED [None]
  - POLYMYALGIA RHEUMATICA [None]
  - PYREXIA [None]
  - SINUSITIS [None]
  - VASCULITIS [None]
  - VISUAL DISTURBANCE [None]
